FAERS Safety Report 8411437-8 (Version None)
Quarter: 2012Q2

REPORT INFORMATION
  Report Type: 
  Country: None (occurrence: None)
  Receive Date: 20120531
  Receipt Date: 20120531
  Transmission Date: 20120825
  Serious: Yes (Hospitalization, Disabling, Other)
  Sender: FDA-Public Use
  Company Number: None

PATIENT
  Age: 22 Year
  Sex: Male
  Weight: 86.1834 kg

DRUGS (1)
  1. TRAMADOL HCL [Suspect]
     Indication: PAIN MANAGEMENT
     Dosage: 100 MG E 4-6 HR ORAL
     Route: 048
     Dates: start: 20120201, end: 20120303

REACTIONS (3)
  - MUSCLE INJURY [None]
  - GRAND MAL CONVULSION [None]
  - UPPER LIMB FRACTURE [None]
